FAERS Safety Report 24898013 (Version 2)
Quarter: 2025Q1

REPORT INFORMATION
  Report Type: Spontaneous
  Country: CN (occurrence: CN)
  Receive Date: 20250129
  Receipt Date: 20250206
  Transmission Date: 20250408
  Serious: Yes (Hospitalization, Other)
  Sender: ROCHE
  Company Number: CN-ROCHE-10000187896

PATIENT
  Age: 33 Year
  Sex: Female

DRUGS (2)
  1. XOFLUZA [Suspect]
     Active Substance: BALOXAVIR MARBOXIL
     Indication: Nasopharyngitis
     Route: 048
  2. CEFTRIAXONE SODIUM [Concomitant]
     Active Substance: CEFTRIAXONE SODIUM
     Indication: Infection
     Route: 065

REACTIONS (14)
  - Erythema multiforme [Recovering/Resolving]
  - Off label use [Unknown]
  - Hypersensitivity [Unknown]
  - Platelet count decreased [Unknown]
  - Protein urine present [Unknown]
  - Glucose urine present [Unknown]
  - Urobilinogen urine increased [Unknown]
  - Urine ketone body present [Unknown]
  - Hepatitis B surface antibody positive [Unknown]
  - Sinus tachycardia [Unknown]
  - Electrocardiogram T wave abnormal [Unknown]
  - Pulmonary fibrosis [Unknown]
  - Lymphadenopathy [Unknown]
  - Pyrexia [Unknown]

NARRATIVE: CASE EVENT DATE: 20250114
